FAERS Safety Report 5783121-0 (Version None)
Quarter: 2008Q2

REPORT INFORMATION
  Report Type: 
  Country: None (occurrence: None)
  Receive Date: 20080619
  Receipt Date: 20080619
  Transmission Date: 20081010
  Serious: Yes (Hospitalization)
  Sender: FDA-Public Use
  Company Number: None

PATIENT
  Sex: Female
  Weight: 69.7 kg

DRUGS (13)
  1. VINCRISTINE SULFATE [Suspect]
     Dosage: 2 MG
  2. CYCLOPHOSPHAMIDE [Suspect]
     Dosage: 841 MG
  3. DOXIL [Suspect]
     Dosage: 56 MG
  4. NEULASTA [Suspect]
     Dosage: 6 MG
  5. PREDNISONE TAB [Suspect]
     Dosage: 350 MG
  6. RITUXIMAB (MOAB C2B8 ANTI CD20, CHIMERIC) [Suspect]
     Dosage: 701 MG
  7. CARVEDILOL [Concomitant]
  8. DIOVAN [Concomitant]
  9. DYAZIDE [Concomitant]
  10. INSULIN [Concomitant]
  11. LOVENOX [Concomitant]
  12. NEXIUM [Concomitant]
  13. SULFASALAZINE [Concomitant]

REACTIONS (3)
  - ABSCESS [None]
  - ARTHRALGIA [None]
  - SPINAL DISORDER [None]
